FAERS Safety Report 5054373-X (Version None)
Quarter: 2006Q2

REPORT INFORMATION
  Report Type: 
  Country: None (occurrence: None)
  Receive Date: 20060616
  Receipt Date: 20060524
  Transmission Date: 20061013
  Serious: Yes (Other)
  Sender: FDA-Public Use
  Company Number: 225531

PATIENT
  Age: 70 Year
  Sex: Female
  Weight: 33.1 kg

DRUGS (4)
  1. AVASTIN [Suspect]
     Indication: NON-SMALL CELL LUNG CANCER
     Dosage: 730 MG, INTRAVENOUS
     Route: 042
     Dates: start: 20060306
  2. TAXOL [Concomitant]
  3. CARBOPLATIN [Concomitant]
  4. KEFLEX [Concomitant]

REACTIONS (2)
  - CATHETER SITE HAEMORRHAGE [None]
  - HAEMATOMA [None]
